FAERS Safety Report 21331057 (Version 4)
Quarter: 2024Q3

REPORT INFORMATION
  Report Type: Spontaneous
  Country: US (occurrence: US)
  Receive Date: 20220914
  Receipt Date: 20240913
  Transmission Date: 20241016
  Serious: Yes (Hospitalization, Other)
  Sender: ROCHE
  Company Number: US-ROCHE-3175539

PATIENT
  Age: 41 Year
  Sex: Female
  Weight: 72.57 kg

DRUGS (2)
  1. XOLAIR [Suspect]
     Active Substance: OMALIZUMAB
     Indication: Urticaria
     Dosage: TWO 150 MG SYRINGES PER DOSE, ONCE EVERY 3 OR 4 WEEKS (SHE IS NOT SURE) ;ONGOING: YES, STRENGTH: 150
     Route: 058
     Dates: start: 202111
  2. XOLAIR [Suspect]
     Active Substance: OMALIZUMAB

REACTIONS (20)
  - Postural orthostatic tachycardia syndrome [Recovered/Resolved]
  - Swelling [Recovered/Resolved]
  - Gastric dilatation [Recovered/Resolved]
  - Carbon dioxide decreased [Recovered/Resolved]
  - Alanine aminotransferase increased [Unknown]
  - Blood alkaline phosphatase increased [Unknown]
  - Blood chloride increased [Unknown]
  - Arthralgia [Recovered/Resolved]
  - Hypoxia [Recovered/Resolved]
  - COVID-19 [Recovered/Resolved]
  - Skin ulcer [Recovered/Resolved]
  - Impaired gastric emptying [Not Recovered/Not Resolved]
  - Urticaria [Recovered/Resolved]
  - Pancreatic failure [Not Recovered/Not Resolved]
  - Device issue [Unknown]
  - Product dose omission issue [Unknown]
  - Product leakage [Unknown]
  - Pruritus [Unknown]
  - Pain [Unknown]
  - Drug hypersensitivity [Not Recovered/Not Resolved]

NARRATIVE: CASE EVENT DATE: 20220101
